FAERS Safety Report 12372672 (Version 1)
Quarter: 2016Q2

REPORT INFORMATION
  Report Type: Other
  Country: None (occurrence: RU)
  Receive Date: 20160516
  Receipt Date: 20160516
  Transmission Date: 20160815
  Serious: Yes (Congenital Anomaly)
  Sender: FDA-Public Use
  Company Number: RU-MERCK KGAA-1052257

PATIENT

DRUGS (1)
  1. NOVOTHYROX [Suspect]
     Active Substance: LEVOTHYROXINE SODIUM

REACTIONS (4)
  - Multiple congenital abnormalities [None]
  - Foetal exposure during pregnancy [None]
  - Congenital central nervous system anomaly [None]
  - Congenital hypothyroidism [None]
